FAERS Safety Report 4832007-4 (Version None)
Quarter: 2005Q4

REPORT INFORMATION
  Report Type: 
  Country: None (occurrence: None)
  Receive Date: 20051116
  Receipt Date: 20051107
  Transmission Date: 20060501
  Serious: Yes (Life-Threatening, Hospitalization)
  Sender: FDA-Public Use
  Company Number: PHFR2005GB03603

PATIENT
  Age: 52 Year
  Sex: Female
  Weight: 80 kg

DRUGS (4)
  1. DICLOFENAC SODIUM [Suspect]
     Dosage: 50 MG, PRN, ORAL
     Route: 048
     Dates: start: 20051019, end: 20051021
  2. FLUOXETINE [Suspect]
     Dosage: 20 MG, QD, ORAL
     Route: 048
     Dates: start: 20050501
  3. CO-CODAMOL (CODEINE PHOSPHATE, PARACETAMOL) TABLET [Concomitant]
  4. GABAPENTIN [Concomitant]

REACTIONS (2)
  - DUODENAL ULCER [None]
  - GASTROINTESTINAL HAEMORRHAGE [None]
